FAERS Safety Report 10768156 (Version 2)
Quarter: 2015Q1

REPORT INFORMATION
  Report Type: Report from Study
  Country: DK (occurrence: DK)
  Receive Date: 20150206
  Receipt Date: 20150210
  Transmission Date: 20150721
  Serious: Yes (Life-Threatening, Hospitalization, Disabling)
  Sender: FDA-Public Use
  Company Number: DK-ROCHE-1523492

PATIENT
  Age: 48 Year
  Sex: Male

DRUGS (10)
  1. EMEND [Concomitant]
     Active Substance: APREPITANT
     Indication: ANTIEMETIC SUPPORTIVE CARE
     Route: 065
     Dates: start: 201411, end: 20141205
  2. INTRON A [Suspect]
     Active Substance: INTERFERON ALFA-2B
     Indication: TRANSITIONAL CELL CARCINOMA METASTATIC
     Dosage: INTERFERON 3 MIE SC ONCE DAILY FOR 5 DAYS WITH START (17/NOV/2014, 24/NOV/2014 AND 01/DEC/2014).
     Route: 058
     Dates: start: 20141020, end: 20141205
  3. INTERLEUKIN-2 [Suspect]
     Active Substance: ALDESLEUKIN
     Indication: TRANSITIONAL CELL CARCINOMA METASTATIC
     Dosage: INJECTION INTERLEUKIN 2 SC 5.1 MIE TWICE DAILY FOR 5 DAYS ON (17/NOV/2014, 24/NOV/2014 AND 01/DEC/20
     Route: 058
     Dates: start: 20141020, end: 20141205
  4. MOTILIUM [Concomitant]
     Active Substance: DOMPERIDONE
     Indication: ANTIEMETIC SUPPORTIVE CARE
     Route: 065
     Dates: start: 201411, end: 20141205
  5. ZOFRAN [Concomitant]
     Active Substance: ONDANSETRON HYDROCHLORIDE
     Indication: ANTIEMETIC SUPPORTIVE CARE
     Route: 065
     Dates: start: 201411, end: 20141205
  6. ATARAX [Concomitant]
     Active Substance: HYDROXYZINE\HYDROXYZINE HYDROCHLORIDE
     Indication: PRURITUS
     Route: 065
     Dates: start: 20141124, end: 20141205
  7. METRONIDAZOLE. [Concomitant]
     Active Substance: METRONIDAZOLE
     Route: 065
     Dates: start: 20141204
  8. GENTAMICIN. [Concomitant]
     Active Substance: GENTAMICIN
     Route: 065
     Dates: start: 20141204, end: 20141204
  9. TAZOCIN [Concomitant]
     Active Substance: PIPERACILLIN SODIUM\TAZOBACTAM SODIUM
     Route: 065
     Dates: start: 20141204
  10. BEVACIZUMAB [Suspect]
     Active Substance: BEVACIZUMAB
     Indication: TRANSITIONAL CELL CARCINOMA METASTATIC
     Dosage: STRENGTH: 25 MG/ML.
     Route: 042
     Dates: start: 20141020, end: 20141205

REACTIONS (4)
  - Hemiplegia [Not Recovered/Not Resolved]
  - Decubitus ulcer [Not Recovered/Not Resolved]
  - Cerebrovascular accident [Unknown]
  - Aphasia [Not Recovered/Not Resolved]

NARRATIVE: CASE EVENT DATE: 20141204
